FAERS Safety Report 4338329-8 (Version None)
Quarter: 2004Q2

REPORT INFORMATION
  Report Type: 
  Country: None (occurrence: None)
  Receive Date: 20040407
  Receipt Date: 20040331
  Transmission Date: 20050107
  Serious: Yes (Hospitalization)
  Sender: FDA-Public Use
  Company Number: 04P-056-0251051-00

PATIENT
  Age: 78 Year
  Sex: Male

DRUGS (2)
  1. ISOPTIN [Suspect]
     Indication: ESSENTIAL HYPERTENSION
     Dosage: SEE IMAGE
     Route: 048
     Dates: end: 20030101
  2. ISOPTIN [Suspect]
     Indication: ESSENTIAL HYPERTENSION
     Dosage: SEE IMAGE
     Route: 048
     Dates: start: 20030101, end: 20031208

REACTIONS (5)
  - CONSTIPATION [None]
  - DYSURIA [None]
  - FLATULENCE [None]
  - GASTROINTESTINAL DISORDER [None]
  - VOMITING [None]
